FAERS Safety Report 14030695 (Version 1)
Quarter: 2017Q4

REPORT INFORMATION
  Report Type: Spontaneous
  Country: US (occurrence: US)
  Receive Date: 20171002
  Receipt Date: 20171002
  Transmission Date: 20180321
  Serious: Yes (Other)
  Sender: FDA-Public Use
  Company Number: US-JNJFOC-20170920275

PATIENT
  Age: 38 Year
  Sex: Female
  Weight: 77.11 kg

DRUGS (2)
  1. CHILDRENS BENADRYL CHEWABLES [Suspect]
     Active Substance: DIPHENHYDRAMINE HYDROCHLORIDE
     Indication: ALLERGY TO ARTHROPOD STING
     Dosage: 2 CHEWABLES TABLETS ONCE
     Route: 048
     Dates: start: 20170916, end: 20170916
  2. CHILDRENS BENADRYL CHEWABLES [Suspect]
     Active Substance: DIPHENHYDRAMINE HYDROCHLORIDE
     Indication: SWELLING
     Dosage: 2 CHEWABLES TABLETS ONCE
     Route: 048
     Dates: start: 20170916, end: 20170916

REACTIONS (3)
  - Drug hypersensitivity [Recovered/Resolved]
  - Product use in unapproved indication [Unknown]
  - Drug administered to patient of inappropriate age [Unknown]

NARRATIVE: CASE EVENT DATE: 20170916
